FAERS Safety Report 14530011 (Version 1)
Quarter: 2018Q1

REPORT INFORMATION
  Report Type: Spontaneous
  Country: US (occurrence: US)
  Receive Date: 20180214
  Receipt Date: 20180214
  Transmission Date: 20180509
  Serious: No
  Sender: FDA-Public Use
  Company Number: US-ENDO PHARMACEUTICALS INC-2017-003334

PATIENT
  Sex: Male
  Weight: 129.25 kg

DRUGS (1)
  1. TESTOSTERONE GEL [Suspect]
     Active Substance: TESTOSTERONE
     Indication: BLOOD TESTOSTERONE DECREASED
     Dosage: 10 MG, TWO PUMPS EACH THIGH
     Route: 061

REACTIONS (2)
  - Blood testosterone decreased [Recovered/Resolved]
  - Drug ineffective [Recovered/Resolved]
